FAERS Safety Report 23399767 (Version 1)
Quarter: 2024Q1

REPORT INFORMATION
  Report Type: Spontaneous
  Country: US (occurrence: US)
  Receive Date: 20240114
  Receipt Date: 20240114
  Transmission Date: 20240409
  Serious: No
  Sender: FDA-Public Use
  Company Number: US-GSK-US2024AMR001142

PATIENT
  Age: 59 Year
  Sex: Female

DRUGS (6)
  1. FLUTICASONE PROPIONATE [Suspect]
     Active Substance: FLUTICASONE PROPIONATE
     Indication: Product used for unknown indication
     Dosage: UNK
  2. TREPROSTINIL SODIUM [Suspect]
     Active Substance: TREPROSTINIL SODIUM
     Indication: Pulmonary arterial hypertension
     Dosage: 0.02383 ?G/KG
     Route: 058
     Dates: start: 2023
  3. TREPROSTINIL SODIUM [Suspect]
     Active Substance: TREPROSTINIL SODIUM
     Dosage: 0.02737 ?G/KG
     Route: 058
     Dates: start: 2023
  4. TREPROSTINIL SODIUM [Suspect]
     Active Substance: TREPROSTINIL SODIUM
     Dosage: 0.02825 ?G/KG
     Route: 058
     Dates: start: 2023
  5. TREPROSTINIL SODIUM [Suspect]
     Active Substance: TREPROSTINIL SODIUM
     Dosage: 0.021 ?G/KG
     Route: 058
     Dates: start: 202310
  6. ELIQUIS [Concomitant]
     Active Substance: APIXABAN
     Indication: Product used for unknown indication
     Dosage: UNK
     Dates: start: 202309

REACTIONS (7)
  - Epistaxis [Recovered/Resolved]
  - Nasal dryness [Unknown]
  - Infusion site erythema [Unknown]
  - Infusion site pain [Not Recovered/Not Resolved]
  - Hypoaesthesia [Unknown]
  - Diarrhoea [Unknown]
  - Vomiting [Unknown]

NARRATIVE: CASE EVENT DATE: 20231001
